FAERS Safety Report 14993184 (Version 4)
Quarter: 2019Q1

REPORT INFORMATION
  Report Type: Report from Study
  Country: DE (occurrence: DE)
  Receive Date: 20180610
  Receipt Date: 20190125
  Transmission Date: 20190417
  Serious: Yes (Hospitalization)
  Sender: FDA-Public Use
  Company Number: PHHY2018DE015075

PATIENT
  Sex: Female
  Weight: 28.6 kg

DRUGS (4)
  1. ILARIS [Suspect]
     Active Substance: CANAKINUMAB
     Indication: STILL^S DISEASE
     Dosage: 150 MG, QMO
     Route: 042
     Dates: start: 20140130
  2. FOLIC ACID. [Concomitant]
     Active Substance: FOLIC ACID
     Indication: PRODUCT USED FOR UNKNOWN INDICATION
     Dosage: 5 MG, QW
     Route: 065
     Dates: start: 20151217
  3. ONDANSETRON [Concomitant]
     Active Substance: ONDANSETRON
     Indication: PRODUCT USED FOR UNKNOWN INDICATION
     Dosage: 4 MG, QD
     Route: 048
     Dates: start: 20160501
  4. METHOTREXATE. [Suspect]
     Active Substance: METHOTREXATE
     Indication: STILL^S DISEASE
     Dosage: 15 MG, QW
     Route: 058
     Dates: start: 20151217

REACTIONS (7)
  - Scarlet fever [Recovered/Resolved]
  - Skin papilloma [Recovered/Resolved]
  - Upper respiratory tract infection [Recovered/Resolved]
  - Superinfection [Recovered/Resolved]
  - Skin lesion [Recovered/Resolved]
  - Hepatic enzyme increased [Recovered/Resolved]
  - Lymphangitis [Recovered/Resolved]

NARRATIVE: CASE EVENT DATE: 20160501
